FAERS Safety Report 13495672 (Version 2)
Quarter: 2017Q2

REPORT INFORMATION
  Report Type: Spontaneous
  Country: MX (occurrence: MX)
  Receive Date: 20170428
  Receipt Date: 20170510
  Transmission Date: 20170830
  Serious: Yes (Hospitalization, Other)
  Sender: FDA-Public Use
  Company Number: MX-MYLANLABS-2017M1025632

PATIENT

DRUGS (5)
  1. FLUOXETINE [Concomitant]
     Active Substance: FLUOXETINE HYDROCHLORIDE
     Indication: ATTENTION DEFICIT/HYPERACTIVITY DISORDER
     Route: 065
  2. HALOPERIDOL. [Suspect]
     Active Substance: HALOPERIDOL
     Indication: ATTENTION DEFICIT/HYPERACTIVITY DISORDER
     Dosage: 0.7-0.9MG
     Route: 048
  3. HALOPERIDOL. [Suspect]
     Active Substance: HALOPERIDOL
     Dosage: 0.7-0.9MG (0.35-0.45 ML / 7-9 DROPS)
     Route: 048
  4. METHYLPHENIDATE. [Concomitant]
     Active Substance: METHYLPHENIDATE
     Indication: ATTENTION DEFICIT/HYPERACTIVITY DISORDER
     Route: 065
  5. CARBAMAZEPINE. [Concomitant]
     Active Substance: CARBAMAZEPINE
     Indication: ATTENTION DEFICIT/HYPERACTIVITY DISORDER
     Route: 065

REACTIONS (16)
  - Mobility decreased [Recovering/Resolving]
  - Resting tremor [Recovering/Resolving]
  - Hyperreflexia [Recovering/Resolving]
  - Unresponsive to stimuli [Recovering/Resolving]
  - Eyelid function disorder [Recovering/Resolving]
  - Chest pain [Recovering/Resolving]
  - Dysarthria [Recovering/Resolving]
  - Akathisia [Recovering/Resolving]
  - Hypertonia [Recovering/Resolving]
  - Heart sounds abnormal [Recovering/Resolving]
  - Somnolence [Recovering/Resolving]
  - Muscle contracture [Recovering/Resolving]
  - Poisoning deliberate [Recovering/Resolving]
  - Mental impairment [Recovering/Resolving]
  - Opisthotonus [Recovering/Resolving]
  - Facial paralysis [Recovering/Resolving]
